FAERS Safety Report 10795468 (Version 1)
Quarter: 2015Q1

REPORT INFORMATION
  Report Type: Spontaneous
  Country: GB (occurrence: GB)
  Receive Date: 20150215
  Receipt Date: 20150215
  Transmission Date: 20150721
  Serious: Yes (Disabling)
  Sender: FDA-Public Use
  Company Number: GB-WATSON-2015-01850

PATIENT
  Age: 83 Year
  Sex: Female
  Weight: 60.32 kg

DRUGS (1)
  1. CHLORPHENIRAMINE (UNKNOWN) [Suspect]
     Active Substance: CHLORPHENIRAMINE
     Indication: PRODUCT USED FOR UNKNOWN INDICATION
     Dosage: 5 ML, BID
     Route: 065
     Dates: start: 20150110, end: 20150119

REACTIONS (10)
  - Pharyngeal oedema [Recovered/Resolved with Sequelae]
  - Angina pectoris [Unknown]
  - Oesophageal spasm [Unknown]
  - Oesophageal achalasia [Unknown]
  - Hypersensitivity [Unknown]
  - Throat tightness [Recovered/Resolved with Sequelae]
  - Cardiac flutter [Unknown]
  - Rash [Recovered/Resolved with Sequelae]
  - Dry mouth [Recovered/Resolved with Sequelae]
  - Hypotension [Unknown]

NARRATIVE: CASE EVENT DATE: 20150110
